FAERS Safety Report 16847139 (Version 4)
Quarter: 2020Q1

REPORT INFORMATION
  Report Type: Report from Study
  Country: US (occurrence: US)
  Receive Date: 20190924
  Receipt Date: 20200206
  Transmission Date: 20200409
  Serious: Yes (Other)
  Sender: FDA-Public Use
  Company Number: US-INCYTE CORPORATION-2019IN009526

PATIENT

DRUGS (100)
  1. JAKAFI [Suspect]
     Active Substance: RUXOLITINIB
     Dosage: 10/5 MG, QAM/QPM
     Route: 048
     Dates: start: 20160222, end: 20160224
  2. AUGMENTIN [Concomitant]
     Active Substance: AMOXICILLIN\CLAVULANATE POTASSIUM
     Dosage: 500 MILLIGRAM, BID
     Route: 065
     Dates: start: 20161109, end: 20161118
  3. ASCORBIC ACID. [Concomitant]
     Active Substance: ASCORBIC ACID
     Indication: SUPPLEMENTATION THERAPY
     Dosage: 250 MILLIGRAM, BID
     Route: 065
     Dates: start: 20170204, end: 20170228
  4. MAGNESIUM+CALCIUM+D3 [Concomitant]
     Indication: SUPPLEMENTATION THERAPY
     Dosage: 2 TABLET, BID
     Route: 065
     Dates: start: 20161106, end: 20161112
  5. CLOTRIMAZOLE. [Concomitant]
     Active Substance: CLOTRIMAZOLE
     Indication: FUNGAL SKIN INFECTION
     Dosage: 10 MILLIGRAM, QD
     Route: 065
     Dates: start: 20160222, end: 20160316
  6. ERGOCALCIFEROL. [Concomitant]
     Active Substance: ERGOCALCIFEROL
     Indication: PROPHYLAXIS
     Dosage: 50000 INTERNATIONAL UNIT, ONCE
     Route: 065
     Dates: start: 20161107, end: 20161107
  7. FLUCONAZOLE. [Concomitant]
     Active Substance: FLUCONAZOLE
     Indication: PROPHYLAXIS
     Dosage: 200 MILLIGRAM, QOD
     Route: 065
     Dates: start: 20160127, end: 20160311
  8. LASIX [Concomitant]
     Active Substance: FUROSEMIDE
     Indication: HYPERTENSION
     Dosage: 20 MILLIGRAM, QOD
     Route: 065
     Dates: start: 20150715, end: 20160225
  9. HYDROXYCHLOROQUINE SULFATE. [Concomitant]
     Active Substance: HYDROXYCHLOROQUINE SULFATE
     Dosage: 400 MILLIGRAM, QD
     Route: 065
     Dates: start: 20161106, end: 20180426
  10. IPRATROPIUM BROMIDE. [Concomitant]
     Active Substance: IPRATROPIUM BROMIDE
     Indication: HYPERSENSITIVITY
     Dosage: 2 SPRAYS, QD
     Route: 065
     Dates: start: 20170320, end: 20171117
  11. LAMOTRIGINE. [Concomitant]
     Active Substance: LAMOTRIGINE
     Dosage: 25 MILLIGRAM, BID
     Route: 065
     Dates: start: 20180303, end: 20180426
  12. LEVETIRACETAM. [Concomitant]
     Active Substance: LEVETIRACETAM
     Indication: SEIZURE
     Dosage: 250 MILLIGRAM, QD
     Route: 065
     Dates: start: 20170818, end: 20180221
  13. NEBIVOLOL. [Concomitant]
     Active Substance: NEBIVOLOL
     Dosage: 10 MILLIGRAM, QD
     Route: 065
     Dates: start: 20161112, end: 20180426
  14. OXYCODONE AND ACETAMINOPHEN [Concomitant]
     Active Substance: ACETAMINOPHEN\OXYCODONE HYDROCHLORIDE
     Indication: PAIN
     Dosage: 1 TABLET, Q4HR PRN
     Route: 065
     Dates: start: 20161120, end: 20180426
  15. TRAZODONE [Concomitant]
     Active Substance: TRAZODONE HYDROCHLORIDE
     Dosage: 50 MILLIGRAM, NIGHTLY
     Route: 065
     Dates: start: 20160715, end: 20160803
  16. JAKAFI [Suspect]
     Active Substance: RUXOLITINIB
     Dosage: 5 MILLIGRAM, BID
     Route: 048
     Dates: start: 20180111, end: 20180426
  17. AXITINIB [Concomitant]
     Active Substance: AXITINIB
     Dosage: 2 MILLIGRAM, BID
     Route: 065
     Dates: start: 20160715, end: 20160802
  18. DOXEPIN [Concomitant]
     Active Substance: DOXEPIN
     Indication: PRURITUS
  19. LOVENOX [Concomitant]
     Active Substance: ENOXAPARIN SODIUM
     Indication: ANTIPHOSPHOLIPID SYNDROME
     Dosage: 60 MILLIGRAM, QD
     Route: 065
     Dates: start: 20180221, end: 20180426
  20. EZETIMIBE. [Concomitant]
     Active Substance: EZETIMIBE
     Indication: HYPERCHOLESTEROLAEMIA
     Dosage: 10 MILLIGRAM, QD
     Route: 065
     Dates: start: 20170330, end: 20180426
  21. LORAZEPAM. [Concomitant]
     Active Substance: LORAZEPAM
     Dosage: 1 MILLIGRAM, QD
     Route: 065
     Dates: start: 20161112, end: 20180426
  22. METHYLPREDNISOLONE. [Concomitant]
     Active Substance: METHYLPREDNISOLONE
     Indication: SKIN ULCER
     Dosage: 40 MILLIGRAM, QD
     Route: 065
     Dates: start: 20151209, end: 20160311
  23. RED BLOOD CELLS [Concomitant]
     Active Substance: HUMAN RED BLOOD CELL
     Indication: ANAEMIA
     Dosage: 1 INTERNATIONAL UNIT, ONCE
     Route: 065
     Dates: start: 20160920, end: 20160920
  24. VOTRIENT [Concomitant]
     Active Substance: PAZOPANIB HYDROCHLORIDE
     Dosage: 800 MILLIGRAM, 5 DAYS ON/2 DAYS OFF
     Route: 065
     Dates: start: 20160930, end: 20161106
  25. VOTRIENT [Concomitant]
     Active Substance: PAZOPANIB HYDROCHLORIDE
     Dosage: 400 MILLIGRAM, QD
     Route: 065
     Dates: start: 20160805, end: 20160916
  26. SERTRALINE [Concomitant]
     Active Substance: SERTRALINE HYDROCHLORIDE
     Indication: ANXIETY
     Dosage: 150 MILLIGRAM, NIGHTLY
     Route: 065
     Dates: start: 20170119, end: 20171229
  27. TRAZODONE [Concomitant]
     Active Substance: TRAZODONE HYDROCHLORIDE
     Indication: INSOMNIA
     Dosage: 50 MILLIGRAM, NIGHTLY
     Route: 065
     Dates: start: 20161106, end: 20180426
  28. JAKAFI [Suspect]
     Active Substance: RUXOLITINIB
     Dosage: 10/5 MG, QAM/QPM
     Route: 048
     Dates: start: 20171020, end: 20171108
  29. ALLOPURINOL. [Concomitant]
     Active Substance: ALLOPURINOL
     Indication: GOUT
     Dosage: 100 MILLIGRAM, QD
     Route: 065
     Dates: start: 20120608, end: 20180426
  30. AXITINIB [Concomitant]
     Active Substance: AXITINIB
     Dosage: 2 MILLIGRAM, BID
     Route: 065
     Dates: start: 20160414, end: 20160607
  31. VITAMIN B COMPLEX NOS [Concomitant]
     Active Substance: CYANOCOBALAMIN\PYRIDOXINE HYDROCHLORIDE\RIBOFLAVIN\SODIUM PANTOTHENATE\THIAMINE HYDROCHLORIDE\VITAMIN B COMPLEX
     Indication: SUPPLEMENTATION THERAPY
     Dosage: 50 MILLIGRAM, QD
     Route: 065
     Dates: start: 2009, end: 20180426
  32. VITAMIN D3 [Concomitant]
     Active Substance: CHOLECALCIFEROL
     Indication: SUPPLEMENTATION THERAPY
     Dosage: 1 TABLET, QD
     Route: 065
     Dates: start: 20130222, end: 20180426
  33. DOXEPIN [Concomitant]
     Active Substance: DOXEPIN
     Indication: INSOMNIA
     Dosage: UNK
     Route: 065
     Dates: start: 20160714, end: 20160823
  34. LOVENOX [Concomitant]
     Active Substance: ENOXAPARIN SODIUM
     Dosage: 40 MILLIGRAM, QD
     Route: 065
     Dates: start: 20161112, end: 20170825
  35. LOVENOX [Concomitant]
     Active Substance: ENOXAPARIN SODIUM
     Dosage: 50 MILLIGRAM, ONCE
     Route: 065
     Dates: start: 20161106, end: 20161106
  36. LORAZEPAM. [Concomitant]
     Active Substance: LORAZEPAM
     Indication: INSOMNIA
     Dosage: 1 MILLIGRAM, QD
     Route: 065
     Dates: start: 20160622, end: 20161107
  37. LOSARTAN POTASSIUM. [Concomitant]
     Active Substance: LOSARTAN POTASSIUM
     Dosage: 50 MILLIGRAM, BID
     Route: 065
     Dates: start: 20161112, end: 20180426
  38. MAGNESIUM CITRATE. [Concomitant]
     Active Substance: MAGNESIUM CITRATE
     Indication: CONSTIPATION
     Dosage: 300 MILLILITER, ONCE
     Route: 065
     Dates: start: 20161110, end: 20161110
  39. MELATONIN [Concomitant]
     Active Substance: MELATONIN
     Indication: INSOMNIA
     Dosage: 3 MILLIGRAM, QD
     Route: 065
     Dates: start: 20160210, end: 20170112
  40. MULTIVITAMIN                       /07504101/ [Concomitant]
     Active Substance: VITAMINS
     Indication: SUPPLEMENTATION THERAPY
     Dosage: 1 TABLET, QD
     Route: 065
     Dates: start: 20170330, end: 20171012
  41. SULFAMETHOXAZOL W/TRIMETOPRIM [Concomitant]
     Active Substance: SULFAMETHOXAZOLE\TRIMETHOPRIM
     Indication: ULCER
     Dosage: 1 TABLET, BID MON, WED, FRI
     Route: 065
     Dates: start: 20160106, end: 2017
  42. AXITINIB [Concomitant]
     Active Substance: AXITINIB
     Indication: RENAL CELL CARCINOMA
     Dosage: 3 MILLIGRAM, BID
     Route: 065
     Dates: start: 20160314, end: 20160328
  43. BISCODYL [Concomitant]
     Active Substance: BISACODYL
     Indication: PRODUCT USED FOR UNKNOWN INDICATION
     Dosage: 10 MILLIGRAM, ONCE
     Route: 065
     Dates: start: 20161110, end: 20161111
  44. CEFAZOLIN SODIUM. [Concomitant]
     Active Substance: CEFAZOLIN SODIUM
     Indication: PROPHYLAXIS
     Dosage: 2000 MILLIGRAM, ONCE
     Route: 065
     Dates: start: 20161109, end: 20161109
  45. CLEARLAX [Concomitant]
     Active Substance: POLYETHYLENE GLYCOL 3350
     Indication: CONSTIPATION
     Dosage: 1 PACKET, QD
     Route: 065
     Dates: start: 20161102, end: 20180426
  46. CLOPIDOGREL [Concomitant]
     Active Substance: CLOPIDOGREL BISULFATE
     Indication: ANTIPHOSPHOLIPID SYNDROME
     Dosage: 75 MILLIGRAM, QD
     Route: 065
     Dates: start: 20170329, end: 20180426
  47. LASIX [Concomitant]
     Active Substance: FUROSEMIDE
     Dosage: 20 MILLIGRAM, QD
     Route: 065
     Dates: start: 20161112, end: 20180426
  48. HYDROXYCHLOROQUINE SULFATE. [Concomitant]
     Active Substance: HYDROXYCHLOROQUINE SULFATE
     Indication: ANTIPHOSPHOLIPID SYNDROME
     Dosage: 200 MILLIGRAM, BID
     Route: 065
     Dates: start: 20160520, end: 20161105
  49. HYDROXYUREA. [Concomitant]
     Active Substance: HYDROXYUREA
     Indication: POLYCYTHAEMIA VERA
     Dosage: 1000 MILLIGRAM, QD
     Route: 065
     Dates: start: 20171020, end: 20171127
  50. LORATADINE. [Concomitant]
     Active Substance: LORATADINE
     Dosage: 10 MILLIGRAM, QD
     Route: 065
     Dates: start: 20161107, end: 20161112
  51. ZOLPIDEM TARTRATE. [Concomitant]
     Active Substance: ZOLPIDEM TARTRATE
     Indication: INSOMNIA
     Dosage: 5 MILLIGRAM, NIGHTLY PRN
     Route: 065
     Dates: start: 20150423, end: 20160906
  52. JAKAFI [Suspect]
     Active Substance: RUXOLITINIB
     Indication: POLYCYTHAEMIA VERA
     Dosage: 10 MILLIGRAM, BID
     Route: 048
     Dates: start: 20160127, end: 20160222
  53. JAKAFI [Suspect]
     Active Substance: RUXOLITINIB
     Dosage: 5 MILLIGRAM, BID
     Route: 048
     Dates: start: 20180111, end: 20180426
  54. AMLODIPINE [Concomitant]
     Active Substance: AMLODIPINE BESYLATE
     Dosage: 10 MILLIGRAM, QD
     Route: 065
     Dates: start: 20160419, end: 20180426
  55. DOXEPIN [Concomitant]
     Active Substance: DOXEPIN
     Indication: DEPRESSION
     Dosage: 1 MILLILITER,QD NIGHTS
     Route: 065
     Dates: start: 20170117, end: 20180426
  56. LOVENOX [Concomitant]
     Active Substance: ENOXAPARIN SODIUM
     Dosage: 0.6 MILLIGRAM/KILOGRAM, QD
     Route: 065
     Dates: start: 20160817, end: 20161024
  57. LOVENOX [Concomitant]
     Active Substance: ENOXAPARIN SODIUM
     Dosage: 0.5 MILLILITER, QD
     Route: 065
     Dates: start: 20161026, end: 20161105
  58. LASIX [Concomitant]
     Active Substance: FUROSEMIDE
     Dosage: 20 MILLIGRAM, QD
     Route: 065
     Dates: start: 20160318
  59. LASIX [Concomitant]
     Active Substance: FUROSEMIDE
     Dosage: 20 MILLIGRAM, ONCE
     Dates: start: 20161111, end: 20161111
  60. HYDROMORPHONE [Concomitant]
     Active Substance: HYDROMORPHONE
     Indication: PAIN
     Dosage: 0.8 MILLIGRAM, TID
     Route: 065
     Dates: start: 20161106, end: 20161106
  61. LORATADINE. [Concomitant]
     Active Substance: LORATADINE
     Indication: RHINORRHOEA
     Dosage: UNK
     Route: 065
     Dates: start: 20160106, end: 20160715
  62. METOPROLOL TARTRATE. [Concomitant]
     Active Substance: METOPROLOL TARTRATE
     Indication: HYPERTENSION
     Dosage: 25 MILLIGRAM, BID
     Route: 065
     Dates: start: 20161107, end: 20161112
  63. OMEPRAZOLE. [Concomitant]
     Active Substance: OMEPRAZOLE
     Indication: GASTROOESOPHAGEAL REFLUX DISEASE
     Dosage: 20 MILLIGRAM, QD
     Route: 065
     Dates: start: 20130522, end: 20180426
  64. PANTOPRAZOLE [Concomitant]
     Active Substance: PANTOPRAZOLE
     Indication: GASTROOESOPHAGEAL REFLUX DISEASE
     Dosage: 40 MILLIGRAM, QD
     Route: 065
     Dates: start: 20161106, end: 20161112
  65. SENNA                              /00142201/ [Concomitant]
     Active Substance: SENNA LEAF
     Indication: CONSTIPATION
     Dosage: 17.2 MILLIGRAM, QN
     Route: 065
     Dates: start: 20161109, end: 20161111
  66. SERTRALINE [Concomitant]
     Active Substance: SERTRALINE HYDROCHLORIDE
     Dosage: 150 MILLIGRAM, QD
     Route: 065
     Dates: start: 20180302, end: 20180412
  67. TRAZODONE [Concomitant]
     Active Substance: TRAZODONE HYDROCHLORIDE
     Dosage: 25 MILLIGRAM, NIGHTLY
     Route: 065
     Dates: start: 20160803, end: 20161107
  68. JAKAFI [Suspect]
     Active Substance: RUXOLITINIB
     Dosage: 5 MILLIGRAM, BID
     Route: 048
     Dates: start: 20160225, end: 20170808
  69. AMLODIPINE [Concomitant]
     Active Substance: AMLODIPINE BESYLATE
     Indication: HYPERTENSION
     Dosage: 10 MILLIGRAM, QD
     Route: 065
     Dates: start: 20160105, end: 20160222
  70. COLACE [Concomitant]
     Active Substance: DOCUSATE SODIUM
     Indication: CONSTIPATION
     Dosage: 100 MILLIGRAM, TID
     Route: 065
     Dates: start: 20161122, end: 20180426
  71. COLLAGENASE SANTYL [Concomitant]
     Active Substance: COLLAGENASE CLOSTRIDIUM HISTOLYTICUM
     Indication: SKIN ULCER
     Dosage: UNK, QD
     Route: 065
     Dates: start: 20160913, end: 20170117
  72. DOCUSATE SODIUM. [Concomitant]
     Active Substance: DOCUSATE SODIUM
     Indication: CONSTIPATION
     Dosage: 100 MILLIGRAM, TID
     Route: 065
     Dates: start: 20161109, end: 20161112
  73. LOVENOX [Concomitant]
     Active Substance: ENOXAPARIN SODIUM
     Dosage: 60 MILLIGRAM, QD
     Route: 065
     Dates: start: 20170906, end: 20180220
  74. FEXOFENADINE [Concomitant]
     Active Substance: FEXOFENADINE HYDROCHLORIDE
     Indication: HYPERSENSITIVITY
     Dosage: 180 MILLIGRAM, QD
     Route: 065
     Dates: start: 20160805, end: 20180426
  75. FLUTICASONE PROPIONATE. [Concomitant]
     Active Substance: FLUTICASONE PROPIONATE
     Indication: HYPERSENSITIVITY
     Dosage: 1 PUFF, BID
     Route: 065
     Dates: start: 20130403, end: 20170117
  76. LOSARTAN POTASSIUM. [Concomitant]
     Active Substance: LOSARTAN POTASSIUM
     Indication: HYPERTENSION
     Dosage: 50 MILLIGRAM, BID
     Route: 065
     Dates: start: 20130316, end: 20161107
  77. NEBIVOLOL. [Concomitant]
     Active Substance: NEBIVOLOL
     Indication: HYPERTENSION
     Dosage: 10 MILLIGRAM, QD
     Route: 065
     Dates: start: 20160127, end: 20161107
  78. VOTRIENT [Concomitant]
     Active Substance: PAZOPANIB HYDROCHLORIDE
     Dosage: 200 MILLIGRAM, QD WEEKDAYS
     Route: 065
     Dates: start: 20180202, end: 20180426
  79. POLYETHYLENE GLYCOL [Concomitant]
     Active Substance: POLYETHYLENE GLYCOLS
     Indication: CONSTIPATION
     Dosage: 1 PACKET, QD
     Route: 065
     Dates: start: 20161106, end: 20161112
  80. SERTRALINE [Concomitant]
     Active Substance: SERTRALINE HYDROCHLORIDE
     Dosage: 100 MILLIGRAM,QD
     Route: 065
     Dates: start: 20180412, end: 20180426
  81. JAKAFI [Suspect]
     Active Substance: RUXOLITINIB
     Dosage: 10 MILLIGRAM, BID
     Route: 048
     Dates: start: 20171109, end: 20180110
  82. AUGMENTIN [Concomitant]
     Active Substance: AMOXICILLIN\CLAVULANATE POTASSIUM
     Indication: ULCER
     Dosage: 1 TABLET,BID
     Route: 065
     Dates: start: 20160928, end: 20180426
  83. AUGMENTIN [Concomitant]
     Active Substance: AMOXICILLIN\CLAVULANATE POTASSIUM
     Indication: CELLULITIS
     Dosage: 875 MILLIGRAM, BID
     Route: 065
     Dates: start: 20161104, end: 20161108
  84. DUAC [Concomitant]
     Active Substance: BENZOYL PEROXIDE\CLINDAMYCIN PHOSPHATE
     Indication: SEBACEOUS ADENOMA
     Dosage: UNK, BID
     Route: 065
     Dates: start: 20161004, end: 20170117
  85. LOVENOX [Concomitant]
     Active Substance: ENOXAPARIN SODIUM
     Dosage: 0.5 MILLIGRAM/KILOGRAM, QD
     Route: 065
     Dates: start: 20160302, end: 20160815
  86. IMODIUM [Concomitant]
     Active Substance: LOPERAMIDE HYDROCHLORIDE
     Indication: ANAL INCONTINENCE
     Dosage: UNK
     Route: 065
     Dates: start: 20180417, end: 20180426
  87. LAMOTRIGINE. [Concomitant]
     Active Substance: LAMOTRIGINE
     Indication: SEIZURE
     Dosage: 50 MILLIGRAM, BID
     Route: 065
     Dates: start: 20180108, end: 20180302
  88. MELATONIN [Concomitant]
     Active Substance: MELATONIN
     Dosage: 6 MILLIGRAM, QD
     Route: 065
     Dates: start: 20170113, end: 20180426
  89. METOPROLOL. [Concomitant]
     Active Substance: METOPROLOL
     Indication: HYPERTENSION
     Dosage: 50 MILLIGRAM, QD
     Route: 065
     Dates: start: 20170203, end: 20180426
  90. MORPHINE SULFATE. [Concomitant]
     Active Substance: MORPHINE SULFATE
     Indication: PAIN
     Dosage: 4 MILLIGRAM, OCE
     Route: 065
     Dates: start: 20161105, end: 20161105
  91. MULTIVITAMIN                       /07504101/ [Concomitant]
     Active Substance: VITAMINS
     Dosage: 1 TABLET, QD
     Route: 065
     Dates: start: 20161107, end: 20161112
  92. MUPIROCIN                          /00753902/ [Concomitant]
     Indication: EPISTAXIS
     Dosage: UNK, TID
     Route: 065
     Dates: start: 20160413, end: 20160805
  93. VOTRIENT [Concomitant]
     Active Substance: PAZOPANIB HYDROCHLORIDE
     Indication: RENAL CELL CARCINOMA
     Dosage: 200 MILLIGRAM, QD
     Route: 065
     Dates: start: 20180110, end: 20180130
  94. SERTRALINE [Concomitant]
     Active Substance: SERTRALINE HYDROCHLORIDE
     Indication: DEPRESSION
     Dosage: 75 MILLIGRAM, NIGHTLY
     Route: 065
     Dates: start: 20160109, end: 20160420
  95. SERTRALINE [Concomitant]
     Active Substance: SERTRALINE HYDROCHLORIDE
     Dosage: 200 MILLIGRAM, QD
     Route: 065
     Dates: start: 20171229, end: 20180302
  96. AXITINIB [Concomitant]
     Active Substance: AXITINIB
     Dosage: 2 MILLIGRAM, BID ALTERNATING
     Route: 065
     Dates: start: 20160607, end: 20160715
  97. LOVENOX [Concomitant]
     Active Substance: ENOXAPARIN SODIUM
     Dosage: 40 MILLIGRAM, QD
     Route: 065
     Dates: start: 20161109, end: 20161111
  98. RED BLOOD CELLS [Concomitant]
     Active Substance: HUMAN RED BLOOD CELL
     Dosage: 1 INTERNATIONAL UNIT, ONCE
     Route: 065
     Dates: start: 20161111, end: 20161111
  99. RED BLOOD CELLS [Concomitant]
     Active Substance: HUMAN RED BLOOD CELL
     Dosage: 1 INTERNATIONAL UNIT, ONCE
     Route: 065
     Dates: start: 20180113, end: 20180113
  100. SERTRALINE [Concomitant]
     Active Substance: SERTRALINE HYDROCHLORIDE
     Indication: PERSISTENT DEPRESSIVE DISORDER
     Dosage: 100 MILLIGRAM, NIGHTLY
     Route: 065
     Dates: start: 20160421, end: 20170119

REACTIONS (15)
  - Injection site haematoma [Recovered/Resolved]
  - Fall [Recovered/Resolved with Sequelae]
  - Oedema peripheral [Not Recovered/Not Resolved]
  - Injection site haemorrhage [Recovered/Resolved]
  - Headache [Not Recovered/Not Resolved]
  - Haematoma [Recovered/Resolved]
  - Foot fracture [Recovered/Resolved]
  - Erythema [Not Recovered/Not Resolved]
  - Abdominal pain [Recovered/Resolved]
  - Anaemia [Recovered/Resolved]
  - Temperature intolerance [Recovered/Resolved]
  - Epistaxis [Recovered/Resolved]
  - Basal cell carcinoma [Recovered/Resolved]
  - Cough [Recovered/Resolved]
  - Polydipsia [Recovered/Resolved]

NARRATIVE: CASE EVENT DATE: 20160813
